FAERS Safety Report 13798162 (Version 1)
Quarter: 2017Q3

REPORT INFORMATION
  Report Type: Spontaneous
  Country: US (occurrence: US)
  Receive Date: 20170726
  Receipt Date: 20170726
  Transmission Date: 20171127
  Serious: Yes (Disabling)
  Sender: FDA-Public Use
  Company Number: None

PATIENT
  Age: 60 Year
  Sex: Female
  Weight: 84.15 kg

DRUGS (10)
  1. CIPRO [Suspect]
     Active Substance: CIPROFLOXACIN HYDROCHLORIDE
     Indication: URINARY TRACT INFECTION
     Route: 048
     Dates: start: 20050601, end: 20050629
  2. VERAPAMIL [Concomitant]
     Active Substance: VERAPAMIL HYDROCHLORIDE
  3. TYLENOL WITH CODEINE [Concomitant]
     Active Substance: ACETAMINOPHEN\CODEINE PHOSPHATE
  4. LISINOPRIL. [Concomitant]
     Active Substance: LISINOPRIL
  5. OMNEPRAZOLE [Concomitant]
  6. LYRICA [Concomitant]
     Active Substance: PREGABALIN
  7. C-PAC MACHINE [Concomitant]
  8. MIRALAX [Concomitant]
     Active Substance: POLYETHYLENE GLYCOL 3350
  9. TRAMADOL. [Concomitant]
     Active Substance: TRAMADOL
  10. IBUPROFEN. [Concomitant]
     Active Substance: IBUPROFEN

REACTIONS (9)
  - Mental impairment [None]
  - Mobility decreased [None]
  - Arthralgia [None]
  - Partner stress [None]
  - Amnesia [None]
  - Malaise [None]
  - Pain [None]
  - Neuralgia [None]
  - Loss of employment [None]

NARRATIVE: CASE EVENT DATE: 20050701
